FAERS Safety Report 23679508 (Version 1)
Quarter: 2024Q1

REPORT INFORMATION
  Report Type: Spontaneous
  Country: FR (occurrence: FR)
  Receive Date: 20240327
  Receipt Date: 20240327
  Transmission Date: 20240410
  Serious: Yes (Hospitalization)
  Sender: FDA-Public Use
  Company Number: None

PATIENT
  Age: 35 Year
  Sex: Female
  Weight: 54 kg

DRUGS (3)
  1. PIROXICAM [Suspect]
     Active Substance: PIROXICAM
     Indication: Sciatica
     Dosage: 20 MILLIGRAM, QD
     Route: 048
     Dates: start: 20231031, end: 20231111
  2. DAFALGAN CODEINE [Suspect]
     Active Substance: ACETAMINOPHEN\CODEINE PHOSPHATE
     Indication: Sciatica
     Dosage: UNSPECIFIED
     Route: 048
     Dates: start: 20231109, end: 20231110
  3. NEFOPAM HYDROCHLORIDE [Suspect]
     Active Substance: NEFOPAM HYDROCHLORIDE
     Indication: Sciatica
     Dosage: 1 DOSAGE FORM, QD
     Route: 048
     Dates: start: 20231103, end: 20231104

REACTIONS (2)
  - Laryngeal oedema [Recovered/Resolved]
  - Rash maculo-papular [Recovered/Resolved]

NARRATIVE: CASE EVENT DATE: 20231110
